FAERS Safety Report 6898819-0 (Version None)
Quarter: 2010Q3

REPORT INFORMATION
  Report Type: 
  Country: None (occurrence: None)
  Receive Date: 20100802
  Receipt Date: 20071126
  Transmission Date: 20110219
  Serious: No
  Sender: FDA-Public Use
  Company Number: US-PFIZER INC-2007083909

PATIENT
  Sex: Male

DRUGS (2)
  1. LYRICA [Suspect]
     Indication: NEURALGIA
     Dates: start: 20071001, end: 20071001
  2. LYRICA [Suspect]
     Indication: FIBROMYALGIA

REACTIONS (4)
  - ABSCESS [None]
  - GINGIVAL BLEEDING [None]
  - PAIN IN JAW [None]
  - TOOTHACHE [None]
